FAERS Safety Report 25138181 (Version 1)
Quarter: 2025Q1

REPORT INFORMATION
  Report Type: Other
  Country: ES (occurrence: ES)
  Receive Date: 20250330
  Receipt Date: 20250330
  Transmission Date: 20250409
  Serious: Yes (Other)
  Sender: VISTAPHARM
  Company Number: ES-Vista Pharmaceuticals Inc.-2173882

PATIENT
  Sex: Male

DRUGS (12)
  1. SULFAMETHOXAZOLE\TRIMETHOPRIM [Suspect]
     Active Substance: SULFAMETHOXAZOLE\TRIMETHOPRIM
     Indication: Pulmonary nocardiosis
  2. TRIMETHOPRIM [Suspect]
     Active Substance: TRIMETHOPRIM
  3. CEFDITOREN [Concomitant]
     Active Substance: CEFDITOREN
  4. PEMBROLIZUMAB [Concomitant]
     Active Substance: PEMBROLIZUMAB
  5. PEMETREXED [Concomitant]
     Active Substance: PEMETREXED
  6. CARBOPLATIN [Concomitant]
     Active Substance: CARBOPLATIN
  7. VINORELBINE [Concomitant]
     Active Substance: VINORELBINE TARTRATE
  8. POLYETHYLENE GLYCOLS [Concomitant]
     Active Substance: POLYETHYLENE GLYCOLS
  9. OMEPRAZOLE [Concomitant]
     Active Substance: OMEPRAZOLE
  10. TAMSULOSIN HYDROCHLORIDE [Concomitant]
     Active Substance: TAMSULOSIN HYDROCHLORIDE
  11. ALPRAZOLAM [Concomitant]
     Active Substance: ALPRAZOLAM
  12. APIXABAN [Concomitant]
     Active Substance: APIXABAN

REACTIONS (1)
  - Hepatotoxicity [Recovering/Resolving]
